FAERS Safety Report 7197244-5 (Version None)
Quarter: 2010Q4

REPORT INFORMATION
  Report Type: 
  Country: None (occurrence: None)
  Receive Date: 20101224
  Receipt Date: 20101213
  Transmission Date: 20110411
  Serious: Yes (Hospitalization)
  Sender: FDA-Public Use
  Company Number: PHHY2010US85152

PATIENT
  Sex: Male

DRUGS (1)
  1. AFINITOR [Suspect]
     Indication: RENAL CANCER
     Dosage: 10MG/ DAILY
     Route: 048
     Dates: start: 20100602

REACTIONS (2)
  - ASTHENOPIA [None]
  - EYE OPERATION [None]
